FAERS Safety Report 8366101-0 (Version None)
Quarter: 2012Q2

REPORT INFORMATION
  Report Type: 
  Country: None (occurrence: None)
  Receive Date: 20120516
  Receipt Date: 20120516
  Transmission Date: 20120825
  Serious: No
  Sender: FDA-Public Use
  Company Number: None

PATIENT
  Sex: Female
  Weight: 78.9259 kg

DRUGS (2)
  1. AMITIZA [Suspect]
     Indication: CONSTIPATION
     Dosage: 24 MCG 1 CAPSULE TWICE WITH FOOD AND WATER
     Dates: start: 20120204, end: 20120228
  2. AMITIZA [Suspect]
     Indication: CONSTIPATION
     Dosage: 24 MCG 1 CAPSULE TWICE WITH FOOD AND WATER
     Dates: start: 20120124

REACTIONS (5)
  - GASTROOESOPHAGEAL REFLUX DISEASE [None]
  - PAIN IN EXTREMITY [None]
  - MALAISE [None]
  - NECK PAIN [None]
  - THROAT IRRITATION [None]
